FAERS Safety Report 26020618 (Version 2)
Quarter: 2025Q4

REPORT INFORMATION
  Report Type: Report from Study
  Country: CA (occurrence: CA)
  Receive Date: 20251110
  Receipt Date: 20251203
  Transmission Date: 20260118
  Serious: Yes (Other)
  Sender: TAKEDA
  Company Number: CA-TAKEDA-2025TUS029728

PATIENT
  Age: 23 Year
  Sex: Female

DRUGS (12)
  1. VEDOLIZUMAB [Suspect]
     Active Substance: VEDOLIZUMAB
     Indication: Colitis ulcerative
     Dosage: 300 MILLIGRAM
  2. VEDOLIZUMAB [Suspect]
     Active Substance: VEDOLIZUMAB
     Dosage: 300 MILLIGRAM
  3. VEDOLIZUMAB [Suspect]
     Active Substance: VEDOLIZUMAB
     Dosage: 300 MILLIGRAM, Q4WEEKS
     Dates: start: 20251202
  4. Cortiment [Concomitant]
     Dosage: UNK
  5. IRON [Concomitant]
     Active Substance: IRON
     Indication: Supplementation therapy
     Dosage: 25 MILLIGRAM
  6. ENTOCORT [Concomitant]
     Active Substance: BUDESONIDE
     Indication: Drug abuse
     Dosage: UNK
  7. LANSOPRAZOLE [Concomitant]
     Active Substance: LANSOPRAZOLE
     Dosage: 30 MILLIGRAM
  8. MOMETASONE FUROATE [Concomitant]
     Active Substance: MOMETASONE FUROATE
     Dosage: 100 MICROGRAM
  9. Atectura breezhale [Concomitant]
     Dosage: UNK
  10. AVIANE 28 DAY [Concomitant]
     Active Substance: ETHINYL ESTRADIOL\LEVONORGESTREL
     Dosage: UNK
  11. FOLIC ACID [Concomitant]
     Active Substance: FOLIC ACID
     Dosage: 1000 MILLIGRAM
  12. VITAMIN D [Concomitant]
     Active Substance: VITAMIN D NOS
     Dosage: 1000 MILLIGRAM

REACTIONS (3)
  - Colitis ulcerative [Unknown]
  - Defaecation urgency [Unknown]
  - Off label use [Unknown]

NARRATIVE: CASE EVENT DATE: 20251202
